FAERS Safety Report 17477516 (Version 1)
Quarter: 2020Q1

REPORT INFORMATION
  Report Type: Spontaneous
  Country: US (occurrence: US)
  Receive Date: 20200228
  Receipt Date: 20200228
  Transmission Date: 20200409
  Serious: No
  Sender: FDA-Public Use
  Company Number: US-SMITH AND NEPHEW, INC-2019SMT00075

PATIENT
  Sex: Female
  Weight: 47.17 kg

DRUGS (3)
  1. COLLAGENASE SANTYL [Suspect]
     Active Substance: COLLAGENASE CLOSTRIDIUM HISTOLYTICUM
     Indication: WOUND
     Dosage: AT A NICKEL THICKNESS, 3X/WEEK (ON MONDAY, WEDNESDAY, AND FRIDAYS) TO HER LEFT AND RIGHT LEG
     Route: 061
     Dates: start: 201907, end: 201909
  2. CYMBALTA [Concomitant]
     Active Substance: DULOXETINE HYDROCHLORIDE
     Dosage: UNK
  3. GABAPENTIN. [Concomitant]
     Active Substance: GABAPENTIN

REACTIONS (4)
  - Wound drainage [Recovered/Resolved]
  - Scab [Recovered/Resolved]
  - Skin exfoliation [Not Recovered/Not Resolved]
  - Wound infection [Recovered/Resolved]

NARRATIVE: CASE EVENT DATE: 2019
